FAERS Safety Report 19762861 (Version 1)
Quarter: 2021Q3

REPORT INFORMATION
  Report Type: Spontaneous
  Country: US (occurrence: US)
  Receive Date: 20210826
  Receipt Date: 20210826
  Transmission Date: 20211014
  Serious: Yes (Hospitalization)
  Sender: FDA-Public Use
  Company Number: None

PATIENT
  Age: 74 Year
  Sex: Male

DRUGS (4)
  1. AMBRISENTAN 5 MG TAB [Suspect]
     Active Substance: AMBRISENTAN
     Route: 048
  2. AMBRISENTAN 5 MG TAB [Suspect]
     Active Substance: AMBRISENTAN
     Indication: PULMONARY HYPERTENSION
     Route: 048
     Dates: start: 20190820
  3. SILDENAFIL. [Concomitant]
     Active Substance: SILDENAFIL
  4. SILDENAFIL CITRATE. [Concomitant]
     Active Substance: SILDENAFIL CITRATE

REACTIONS (1)
  - Staphylococcal infection [None]

NARRATIVE: CASE EVENT DATE: 202107
